FAERS Safety Report 9163726 (Version 1)
Quarter: 2013Q1

REPORT INFORMATION
  Report Type: Spontaneous
  Country: US (occurrence: US)
  Receive Date: 20130314
  Receipt Date: 20130314
  Transmission Date: 20140127
  Serious: Yes (Hospitalization, Other)
  Sender: FDA-Public Use
  Company Number: US-ELI_LILLY_AND_COMPANY-US201303002790

PATIENT
  Sex: Female
  Weight: 52.15 kg

DRUGS (16)
  1. EFFIENT [Suspect]
     Dosage: 5 MG, QD
     Route: 048
  2. PROBENECID [Concomitant]
     Dosage: 500 MG, BID
  3. BENICAR HCT [Concomitant]
     Dosage: UNK, QD
  4. IMDUR [Concomitant]
     Dosage: 30 MG, QD
  5. KLOR-CON [Concomitant]
     Dosage: 8 MEQ, QD
  6. KLOR-CON [Concomitant]
     Dosage: 10 MEQ, QD
  7. LASIX [Concomitant]
     Dosage: 20 MG, QD
  8. CALCIUM +VIT D [Concomitant]
     Dosage: 1 DF, BID
  9. NEXIUM [Concomitant]
     Dosage: 40 MG, QD
  10. EVISTA [Concomitant]
     Dosage: 60 MG, QD
  11. LOPID [Concomitant]
     Dosage: 600 MG, BID
  12. PROTONIX [Concomitant]
     Dosage: 40 MG, QD
  13. CEFTRIAXONE [Concomitant]
     Dosage: 1 G, UNK
  14. GLUCOSAMINE + CHONDROITIN WITH MSM /06119101/ [Concomitant]
     Dosage: 2 DF, QD
     Dates: start: 20121225, end: 20130101
  15. BIOTIN [Concomitant]
     Dosage: 300 UG, BID
     Dates: start: 20121225, end: 20130101
  16. COLLAGEN [Concomitant]
     Dosage: 2 DF, QD
     Dates: start: 20121225, end: 20130101

REACTIONS (8)
  - Mucosal inflammation [Recovering/Resolving]
  - Ischaemic hepatitis [Recovered/Resolved]
  - Altered state of consciousness [Recovering/Resolving]
  - Renal failure acute [Unknown]
  - Troponin increased [Unknown]
  - Drug hypersensitivity [Recovering/Resolving]
  - Malaise [Recovering/Resolving]
  - Hypoaesthesia [Unknown]
